FAERS Safety Report 15223450 (Version 1)
Quarter: 2018Q3

REPORT INFORMATION
  Report Type: Spontaneous
  Country: US (occurrence: US)
  Receive Date: 20180731
  Receipt Date: 20180731
  Transmission Date: 20181010
  Serious: No
  Sender: FDA-Public Use
  Company Number: US-ENDO PHARMACEUTICALS INC-2017-007983

PATIENT
  Age: 47 Year
  Sex: Male
  Weight: 90.7 kg

DRUGS (10)
  1. LISINOPRIL TABLETS 20MG [Concomitant]
     Active Substance: LISINOPRIL
     Indication: HYPERTENSION
     Dosage: UNK
  2. VITAMIN B [Concomitant]
     Active Substance: VITAMIN B
     Indication: PRODUCT USED FOR UNKNOWN INDICATION
     Dosage: UNK
  3. ATORVASTATIN [Concomitant]
     Active Substance: ATORVASTATIN
     Indication: BLOOD CHOLESTEROL INCREASED
     Dosage: UNK
  4. TESTOPEL [Suspect]
     Active Substance: TESTOSTERONE
     Dosage: 750 MG, 10 PELLETS (750 MG) EVERY 3?4 MONTHS
     Route: 058
  5. TESTOPEL [Suspect]
     Active Substance: TESTOSTERONE
     Dosage: 750 MG, 10 PELLETS (750 MG),  UNKNOWN
     Route: 058
     Dates: start: 2010
  6. RHEUMATREX [Concomitant]
     Active Substance: METHOTREXATE SODIUM
     Indication: CROHN^S DISEASE
     Dosage: UNK
  7. HUMIRA [Concomitant]
     Active Substance: ADALIMUMAB
     Indication: CROHN^S DISEASE
     Dosage: UNK
  8. TESTOPEL [Suspect]
     Active Substance: TESTOSTERONE
     Indication: BLOOD TESTOSTERONE DECREASED
     Dosage: 750 MG, 10 PELLETS (750 MG) EVERY 3?4 MONTHS
     Route: 058
     Dates: start: 20171003
  9. ACIPHEX [Concomitant]
     Active Substance: RABEPRAZOLE SODIUM
     Indication: ILL-DEFINED DISORDER
     Dosage: UNK
  10. VITAMIN D                          /00107901/ [Concomitant]
     Active Substance: ERGOCALCIFEROL
     Indication: PRODUCT USED FOR UNKNOWN INDICATION
     Dosage: UNK

REACTIONS (3)
  - Prescribed overdose [Not Recovered/Not Resolved]
  - Blood testosterone decreased [Unknown]
  - Drug ineffective [Unknown]

NARRATIVE: CASE EVENT DATE: 2010
